FAERS Safety Report 6294301-2 (Version None)
Quarter: 2009Q3

REPORT INFORMATION
  Report Type: 
  Country: None (occurrence: None)
  Receive Date: 20090803
  Receipt Date: 20090526
  Transmission Date: 20100115
  Serious: No
  Sender: FDA-Public Use
  Company Number: A0786073A

PATIENT
  Age: 58 Year
  Sex: Female

DRUGS (3)
  1. NICORETTE (MINT) [Suspect]
     Dates: start: 20090411, end: 20090411
  2. NICODERM CQ [Suspect]
  3. ZANTAC [Concomitant]

REACTIONS (4)
  - ABDOMINAL PAIN [None]
  - DYSPEPSIA [None]
  - INSOMNIA [None]
  - NICOTINE DEPENDENCE [None]
